FAERS Safety Report 14995031 (Version 1)
Quarter: 2018Q2

REPORT INFORMATION
  Report Type: Spontaneous
  Country: US (occurrence: US)
  Receive Date: 20180521
  Receipt Date: 20180521
  Transmission Date: 20180711
  Serious: No
  Sender: FDA-Public Use
  Company Number: None

PATIENT
  Age: 48 Year
  Sex: Female
  Weight: 95.4 kg

DRUGS (21)
  1. RESTASIS [Concomitant]
     Active Substance: CYCLOSPORINE
  2. FLUTICASONE PROP (FLONASE) [Concomitant]
  3. VAGIFEM [Concomitant]
     Active Substance: ESTRADIOL
  4. ATOMOXETINE CAPSULES USP [Suspect]
     Active Substance: ATOMOXETINE
     Indication: ATTENTION DEFICIT/HYPERACTIVITY DISORDER
     Dosage: ?          QUANTITY:1 G GRAM(S);?
     Route: 048
     Dates: start: 20170401, end: 20180401
  5. BYDUREON [Concomitant]
     Active Substance: EXENATIDE
  6. METFORMIN [Concomitant]
     Active Substance: METFORMIN HYDROCHLORIDE
  7. PREVIDENT 0.2% [Concomitant]
  8. ROPINEROLE HCL [Concomitant]
  9. HYDROXYZINE PAM (VISTARIL) [Concomitant]
  10. LEVOCETIRIZINE [Concomitant]
     Active Substance: LEVOCETIRIZINE
  11. IBGARD [Concomitant]
  12. ADVIL [Concomitant]
     Active Substance: IBUPROFEN
  13. ESTRADIOL TDS PATCH [Concomitant]
  14. INVOKANA [Concomitant]
     Active Substance: CANAGLIFLOZIN
  15. LISONOPRIL [Concomitant]
  16. STRATTERA [Concomitant]
     Active Substance: ATOMOXETINE HYDROCHLORIDE
  17. CYCLOBENZAPRINE. [Concomitant]
     Active Substance: CYCLOBENZAPRINE
  18. DIPHENOXYLATE/ATROPINE [Concomitant]
     Active Substance: ATROPINE\DIPHENOXYLATE
  19. ONDANSETRON HCL [Concomitant]
     Active Substance: ONDANSETRON HYDROCHLORIDE
  20. PANTOPRAZOLE [Suspect]
     Active Substance: PANTOPRAZOLE
  21. PAZEO [Concomitant]
     Active Substance: OLOPATADINE HYDROCHLORIDE

REACTIONS (3)
  - Product substitution issue [None]
  - Extra dose administered [None]
  - Drug ineffective [None]

NARRATIVE: CASE EVENT DATE: 20180405
